FAERS Safety Report 24042338 (Version 7)
Quarter: 2025Q4

REPORT INFORMATION
  Report Type: Spontaneous
  Country: EU (occurrence: EU)
  Receive Date: 20240702
  Receipt Date: 20251201
  Transmission Date: 20260117
  Serious: Yes (Other)
  Sender: SANDOZ
  Company Number: None

PATIENT
  Age: 41 Year
  Sex: Female

DRUGS (53)
  1. ALKERAN [Suspect]
     Active Substance: MELPHALAN
     Indication: Autologous haematopoietic stem cell transplant
     Dosage: UNK
     Route: 065
     Dates: start: 20230906
  2. ALKERAN [Suspect]
     Active Substance: MELPHALAN
     Indication: Bone marrow conditioning regimen
  3. ALKERAN [Suspect]
     Active Substance: MELPHALAN
     Indication: Chemotherapy
  4. ALKERAN [Suspect]
     Active Substance: MELPHALAN
     Indication: Haemophagocytic lymphohistiocytosis
  5. ALKERAN [Suspect]
     Active Substance: MELPHALAN
     Indication: Peripheral T-cell lymphoma unspecified
  6. ALKERAN [Suspect]
     Active Substance: MELPHALAN
     Indication: T-cell lymphoma
  7. BRENTUXIMAB VEDOTIN [Suspect]
     Active Substance: BRENTUXIMAB VEDOTIN
     Indication: Autologous haematopoietic stem cell transplant
     Dosage: 1.8 MILLIGRAM/KILOGRAM, D1, 6 CYCLES
     Route: 042
     Dates: start: 20230330, end: 20230727
  8. BRENTUXIMAB VEDOTIN [Suspect]
     Active Substance: BRENTUXIMAB VEDOTIN
     Indication: T-cell lymphoma
     Dosage: 1.8 MILLIGRAM/KILOGRAM, D1, 6 CYCLES
     Route: 042
     Dates: start: 20230330, end: 20230724
  9. BRENTUXIMAB VEDOTIN [Suspect]
     Active Substance: BRENTUXIMAB VEDOTIN
     Indication: Bone marrow conditioning regimen
  10. BRENTUXIMAB VEDOTIN [Suspect]
     Active Substance: BRENTUXIMAB VEDOTIN
     Indication: Chemotherapy
  11. BRENTUXIMAB VEDOTIN [Suspect]
     Active Substance: BRENTUXIMAB VEDOTIN
     Indication: Haemophagocytic lymphohistiocytosis
  12. BRENTUXIMAB VEDOTIN [Suspect]
     Active Substance: BRENTUXIMAB VEDOTIN
     Indication: Peripheral T-cell lymphoma unspecified
  13. CYTARABINE [Suspect]
     Active Substance: CYTARABINE
     Indication: T-cell lymphoma
     Dosage: UNK
     Route: 065
     Dates: start: 20230906
  14. CYTARABINE [Suspect]
     Active Substance: CYTARABINE
     Indication: Autologous haematopoietic stem cell transplant
  15. CYTARABINE [Suspect]
     Active Substance: CYTARABINE
     Indication: Bone marrow conditioning regimen
  16. CYTARABINE [Suspect]
     Active Substance: CYTARABINE
     Indication: Chemotherapy
  17. CYTARABINE [Suspect]
     Active Substance: CYTARABINE
     Indication: Haemophagocytic lymphohistiocytosis
  18. CYTARABINE [Suspect]
     Active Substance: CYTARABINE
     Indication: Peripheral T-cell lymphoma unspecified
  19. CARMUSTINE [Suspect]
     Active Substance: CARMUSTINE
     Indication: Autologous haematopoietic stem cell transplant
     Dosage: UNK
     Route: 065
     Dates: start: 20230906
  20. CARMUSTINE [Suspect]
     Active Substance: CARMUSTINE
     Indication: Bone marrow conditioning regimen
  21. CARMUSTINE [Suspect]
     Active Substance: CARMUSTINE
     Indication: Chemotherapy
  22. CARMUSTINE [Suspect]
     Active Substance: CARMUSTINE
     Indication: Haemophagocytic lymphohistiocytosis
  23. CARMUSTINE [Suspect]
     Active Substance: CARMUSTINE
     Indication: Peripheral T-cell lymphoma unspecified
  24. CARMUSTINE [Suspect]
     Active Substance: CARMUSTINE
     Indication: T-cell lymphoma
  25. CYCLOPHOSPHAMIDE [Suspect]
     Active Substance: CYCLOPHOSPHAMIDE
     Indication: Haemophagocytic lymphohistiocytosis
     Dosage: 750 MILLIGRAM/SQ. METER, 6 CYCLES
     Route: 042
     Dates: start: 20230330, end: 20230724
  26. CYCLOPHOSPHAMIDE [Suspect]
     Active Substance: CYCLOPHOSPHAMIDE
     Indication: Autologous haematopoietic stem cell transplant
  27. CYCLOPHOSPHAMIDE [Suspect]
     Active Substance: CYCLOPHOSPHAMIDE
     Indication: Bone marrow conditioning regimen
  28. CYCLOPHOSPHAMIDE [Suspect]
     Active Substance: CYCLOPHOSPHAMIDE
     Indication: Chemotherapy
  29. CYCLOPHOSPHAMIDE [Suspect]
     Active Substance: CYCLOPHOSPHAMIDE
     Indication: Peripheral T-cell lymphoma unspecified
  30. CYCLOPHOSPHAMIDE [Suspect]
     Active Substance: CYCLOPHOSPHAMIDE
     Indication: T-cell lymphoma
  31. DOXORUBICIN [Suspect]
     Active Substance: DOXORUBICIN
     Indication: Autologous haematopoietic stem cell transplant
     Dosage: 50 MILLIGRAM/SQ. METER, 6 CYCLES
     Route: 042
     Dates: start: 20230330, end: 20230727
  32. DOXORUBICIN [Suspect]
     Active Substance: DOXORUBICIN
     Indication: Bone marrow conditioning regimen
     Dosage: 50 MILLIGRAM/SQ. METER, 6 CYCLES
     Route: 042
     Dates: start: 20230330, end: 20230724
  33. DOXORUBICIN [Suspect]
     Active Substance: DOXORUBICIN
     Indication: T-cell lymphoma
     Dosage: 50 MILLIGRAM/SQ. METER, 6 CYCLES
     Route: 042
     Dates: start: 20230330, end: 20230724
  34. DOXORUBICIN [Suspect]
     Active Substance: DOXORUBICIN
     Indication: Chemotherapy
  35. DOXORUBICIN [Suspect]
     Active Substance: DOXORUBICIN
     Indication: Haemophagocytic lymphohistiocytosis
  36. DOXORUBICIN [Suspect]
     Active Substance: DOXORUBICIN
     Indication: Peripheral T-cell lymphoma unspecified
  37. ETOPOSIDE [Suspect]
     Active Substance: ETOPOSIDE
     Indication: Bone marrow conditioning regimen
     Dosage: 100 MILLIGRAM
     Route: 065
     Dates: start: 20230325
  38. ETOPOSIDE [Suspect]
     Active Substance: ETOPOSIDE
     Indication: Chemotherapy
     Dosage: 100 MILLIGRAM/SQ. METER
     Route: 042
     Dates: start: 20230330, end: 20230724
  39. ETOPOSIDE [Suspect]
     Active Substance: ETOPOSIDE
     Indication: T-cell lymphoma
     Dosage: 100 MILLIGRAM/SQ. METER
     Route: 042
     Dates: start: 20230330, end: 20230727
  40. ETOPOSIDE [Suspect]
     Active Substance: ETOPOSIDE
     Indication: Autologous haematopoietic stem cell transplant
     Dosage: UNK
     Route: 065
     Dates: start: 20230906
  41. ETOPOSIDE [Suspect]
     Active Substance: ETOPOSIDE
     Indication: Haemophagocytic lymphohistiocytosis
  42. ETOPOSIDE [Suspect]
     Active Substance: ETOPOSIDE
     Indication: Haemophagocytic lymphohistiocytosis
  43. ETOPOSIDE [Suspect]
     Active Substance: ETOPOSIDE
     Indication: Peripheral T-cell lymphoma unspecified
  44. FILGRASTIM [Suspect]
     Active Substance: FILGRASTIM
     Dosage: UNK
     Route: 048
     Dates: start: 20230330, end: 20230724
  45. FILGRASTIM [Suspect]
     Active Substance: FILGRASTIM
     Indication: Chemotherapy
     Dosage: UNK
     Route: 065
     Dates: start: 20230330, end: 20230727
  46. FILGRASTIM [Suspect]
     Active Substance: FILGRASTIM
     Indication: Peripheral T-cell lymphoma unspecified
     Dosage: UNK
     Route: 065
     Dates: start: 20230724, end: 20230727
  47. FILGRASTIM [Suspect]
     Active Substance: FILGRASTIM
     Dosage: UNK
     Route: 065
     Dates: start: 20230330, end: 20230727
  48. PREDNISONE [Suspect]
     Active Substance: PREDNISONE
     Indication: Autologous haematopoietic stem cell transplant
     Dosage: 100 MG, D1-5, 6 CYCLES
     Route: 048
     Dates: start: 20230330, end: 20230724
  49. PREDNISONE [Suspect]
     Active Substance: PREDNISONE
     Indication: T-cell lymphoma
     Dosage: 100 MG, D1-5, 6 CYCLES
     Route: 048
     Dates: start: 20230330, end: 20230727
  50. PREDNISONE [Suspect]
     Active Substance: PREDNISONE
     Indication: Bone marrow conditioning regimen
     Dosage: 100 MG
     Route: 048
     Dates: start: 20230330
  51. PREDNISONE [Suspect]
     Active Substance: PREDNISONE
     Indication: Chemotherapy
  52. PREDNISONE [Suspect]
     Active Substance: PREDNISONE
     Indication: Haemophagocytic lymphohistiocytosis
  53. PREDNISONE [Suspect]
     Active Substance: PREDNISONE
     Indication: Peripheral T-cell lymphoma unspecified

REACTIONS (3)
  - Peripheral sensorimotor neuropathy [Unknown]
  - Polyneuropathy [Recovered/Resolved]
  - Stomatitis [Unknown]
